FAERS Safety Report 8319615-3 (Version None)
Quarter: 2012Q2

REPORT INFORMATION
  Report Type: 
  Country: None (occurrence: None)
  Receive Date: 20120427
  Receipt Date: 20120420
  Transmission Date: 20120825
  Serious: Yes (Hospitalization, Other)
  Sender: FDA-Public Use
  Company Number: PHHY2011BR59270

PATIENT
  Sex: Female

DRUGS (2)
  1. DIOVAN [Suspect]
     Indication: HYPERTENSION
     Dosage: 4 DF (2 TABLETS IN THE MORNING AND 2 TABLETS IN THE AFTERNOON) DAILY
  2. DIOVAN [Suspect]
     Dosage: 4 DF (2 TABLETS IN THE MORNING AND 2 TABLETS IN THE NIGHT) DAILY

REACTIONS (7)
  - VENOUS OCCLUSION [None]
  - MALAISE [None]
  - OSTEOARTHRITIS [None]
  - NERVOUSNESS [None]
  - MYOCARDIAL INFARCTION [None]
  - FALL [None]
  - BLOOD PRESSURE INCREASED [None]
